FAERS Safety Report 10487812 (Version 1)
Quarter: 2014Q4

REPORT INFORMATION
  Report Type: Spontaneous
  Country: FR (occurrence: FR)
  Receive Date: 20141001
  Receipt Date: 20141001
  Transmission Date: 20150528
  Serious: Yes (Hospitalization)
  Sender: FDA-Public Use
  Company Number: FR-B.I. PHARMACEUTICALS,INC./RIDGEFIELD-2014-BI-46015FF

PATIENT
  Age: 80 Year
  Sex: Male
  Weight: 57.5 kg

DRUGS (1)
  1. PRADAXA [Suspect]
     Active Substance: DABIGATRAN ETEXILATE MESYLATE
     Indication: ARRHYTHMIA
     Dosage: 220 MG
     Route: 048
     Dates: start: 201404, end: 20140910

REACTIONS (5)
  - Haemorrhagic anaemia [Recovered/Resolved]
  - Acute kidney injury [Recovered/Resolved]
  - Rectal haemorrhage [Not Recovered/Not Resolved]
  - Anticoagulation drug level increased [Recovered/Resolved]
  - Asthenia [Not Recovered/Not Resolved]

NARRATIVE: CASE EVENT DATE: 20140830
